FAERS Safety Report 5947857-0 (Version None)
Quarter: 2008Q4

REPORT INFORMATION
  Report Type: 
  Country: None (occurrence: None)
  Receive Date: 20081107
  Receipt Date: 20081023
  Transmission Date: 20090506
  Serious: Yes (Other)
  Sender: FDA-Public Use
  Company Number: TRP_05952_2008

PATIENT
  Age: 32 Year
  Sex: Male

DRUGS (2)
  1. RIBAVIRIN [Suspect]
     Indication: HEPATITIS C VIRUS TEST
     Dosage: (800 MG ORAL)
     Route: 048
  2. PEGINTERFERON ALFA-2A (RECOMBINANT PEGINTERFERON ALFA-2A) [Suspect]
     Indication: HEPATITIS C VIRUS TEST
     Dosage: (180 ?G 1X/WEEK SUBCUTANEOUS)
     Route: 058

REACTIONS (15)
  - ANHEDONIA [None]
  - ANOREXIA [None]
  - ANXIETY [None]
  - ASTHENIA [None]
  - DECREASED INTEREST [None]
  - DISTURBANCE IN ATTENTION [None]
  - EUPHORIC MOOD [None]
  - FEELING ABNORMAL [None]
  - INSOMNIA [None]
  - IRRITABILITY [None]
  - LOGORRHOEA [None]
  - PSYCHOMOTOR HYPERACTIVITY [None]
  - RESTLESSNESS [None]
  - THINKING ABNORMAL [None]
  - WEIGHT DECREASED [None]
